FAERS Safety Report 19518886 (Version 1)
Quarter: 2021Q3

REPORT INFORMATION
  Report Type: Spontaneous
  Country: RO (occurrence: RO)
  Receive Date: 20210712
  Receipt Date: 20210712
  Transmission Date: 20211014
  Serious: Yes (Other)
  Sender: FDA-Public Use
  Company Number: RO-TEVA-2021-RO-1931044

PATIENT
  Sex: Male

DRUGS (1)
  1. COPAXONE [Suspect]
     Active Substance: GLATIRAMER ACETATE
     Route: 058

REACTIONS (3)
  - Expanded disability status scale score increased [Not Recovered/Not Resolved]
  - Epilepsy [Recovered/Resolved]
  - Headache [Not Recovered/Not Resolved]

NARRATIVE: CASE EVENT DATE: 202001
